FAERS Safety Report 16864771 (Version 1)
Quarter: 2019Q3

REPORT INFORMATION
  Report Type: Spontaneous
  Country: US (occurrence: US)
  Receive Date: 20190929
  Receipt Date: 20190929
  Transmission Date: 20191005
  Serious: No
  Sender: FDA-Public Use
  Company Number: US-GLAXOSMITHKLINE-US2019172012

PATIENT
  Age: 58 Year
  Sex: Female

DRUGS (1)
  1. NICORETTE WHITE ICE MINT [Suspect]
     Active Substance: NICOTINE
     Indication: ELECTRONIC CIGARETTE USER
     Dosage: UNK
     Dates: start: 20190916

REACTIONS (3)
  - Product use in unapproved indication [Unknown]
  - Multiple allergies [Unknown]
  - Off label use [Unknown]

NARRATIVE: CASE EVENT DATE: 20190916
